FAERS Safety Report 8958718 (Version 3)
Quarter: 2013Q2

REPORT INFORMATION
  Report Type: Spontaneous
  Country: US (occurrence: US)
  Receive Date: 20121212
  Receipt Date: 20130620
  Transmission Date: 20140414
  Serious: No
  Sender: FDA-Public Use
  Company Number: US-TEVA-374769USA

PATIENT
  Sex: Male
  Weight: 118.04 kg

DRUGS (4)
  1. ACTIQ [Suspect]
     Indication: BACK PAIN
     Dosage: 3200 MICROGRAM DAILY;
     Route: 048
  2. OXYCONTIN [Concomitant]
     Indication: PAIN
     Route: 048
  3. UNKNOWN BLOOD PRESSURE MED [Concomitant]
     Indication: BLOOD PRESSURE ABNORMAL
  4. UNKNOWN NERVE PILL [Concomitant]
     Indication: NERVOUSNESS

REACTIONS (4)
  - Dental caries [Not Recovered/Not Resolved]
  - Tongue injury [Unknown]
  - Nerve injury [Unknown]
  - Off label use [Unknown]
